FAERS Safety Report 12247776 (Version 1)
Quarter: 2016Q2

REPORT INFORMATION
  Report Type: Spontaneous
  Country: VN (occurrence: VN)
  Receive Date: 20160408
  Receipt Date: 20160408
  Transmission Date: 20160815
  Serious: Yes (Hospitalization)
  Sender: FDA-Public Use
  Company Number: VN-009507513-1604VNM000063

PATIENT
  Sex: Female

DRUGS (2)
  1. JANUMET [Suspect]
     Active Substance: METFORMIN HYDROCHLORIDE\SITAGLIPTIN PHOSPHATE
     Dosage: 1 TABLET/NOON, 1 TABLET/AFTERNOON, TWICE A DAY
     Route: 048
     Dates: start: 20151001
  2. INSULIN [Concomitant]
     Active Substance: INSULIN NOS
     Dosage: 12 IU, UNK
     Dates: start: 201510

REACTIONS (1)
  - Vestibular disorder [Recovering/Resolving]

NARRATIVE: CASE EVENT DATE: 2016
